FAERS Safety Report 16996008 (Version 4)
Quarter: 2020Q4

REPORT INFORMATION
  Report Type: Spontaneous
  Country: US (occurrence: US)
  Receive Date: 20191105
  Receipt Date: 20201103
  Transmission Date: 20210113
  Serious: No
  Sender: FDA-Public Use
  Company Number: US-SA-2019SA296090

PATIENT

DRUGS (2)
  1. DUPIXENT [Suspect]
     Active Substance: DUPILUMAB
     Indication: ASTHMA
     Dosage: 300 MG, QOW
     Route: 058
     Dates: start: 2019, end: 2020
  2. DUPIXENT [Suspect]
     Active Substance: DUPILUMAB
     Indication: DERMATITIS ATOPIC
     Dosage: 2 DF, 1X
     Route: 058
     Dates: start: 20190912, end: 20190912

REACTIONS (17)
  - Fatigue [Not Recovered/Not Resolved]
  - Wheezing [Unknown]
  - Nausea [Not Recovered/Not Resolved]
  - Cough [Unknown]
  - Middle insomnia [Unknown]
  - Eye swelling [Unknown]
  - Vomiting [Not Recovered/Not Resolved]
  - Chest discomfort [Unknown]
  - Eye pain [Unknown]
  - Illness [Unknown]
  - Eye pruritus [Unknown]
  - Diarrhoea [Not Recovered/Not Resolved]
  - Abdominal pain upper [Not Recovered/Not Resolved]
  - Influenza [Unknown]
  - Asthma [Unknown]
  - Conjunctivitis [Unknown]
  - Dyspnoea [Unknown]

NARRATIVE: CASE EVENT DATE: 201910
